FAERS Safety Report 4414162-3 (Version None)
Quarter: 2004Q3

REPORT INFORMATION
  Report Type: 
  Country: None (occurrence: None)
  Receive Date: 20040803
  Receipt Date: 20040706
  Transmission Date: 20050211
  Serious: Yes (Death, Hospitalization, Other)
  Sender: FDA-Public Use
  Company Number: DE-BRISTOL-MYERS SQUIBB COMPANY-12633368

PATIENT
  Age: 56 Year
  Sex: Female
  Weight: 34 kg

DRUGS (4)
  1. REYATAZ [Suspect]
     Indication: HIV INFECTION
     Dates: start: 20040514
  2. VIDEX [Suspect]
     Indication: HIV INFECTION
     Dates: start: 20040514
  3. NORVIR [Suspect]
     Indication: HIV INFECTION
     Dates: start: 20040514
  4. VIREAD [Suspect]
     Indication: HIV INFECTION
     Dates: start: 20040514

REACTIONS (4)
  - BLOOD BILIRUBIN INCREASED [None]
  - HAEMOGLOBIN DECREASED [None]
  - HEPATIC FAILURE [None]
  - HYPOGLYCAEMIA [None]
